FAERS Safety Report 8214608-9 (Version None)
Quarter: 2012Q1

REPORT INFORMATION
  Report Type: 
  Country: None (occurrence: None)
  Receive Date: 20120316
  Receipt Date: 20120308
  Transmission Date: 20120608
  Serious: Yes (Hospitalization, Other)
  Sender: FDA-Public Use
  Company Number: JP-VERTEX PHARMACEUTICALS INC.-AE-2012-003017

PATIENT
  Age: 65 Year
  Sex: Female

DRUGS (10)
  1. TELAVIC (TELAPREVIR) [Suspect]
     Indication: HEPATITIS C
     Route: 048
     Dates: start: 20120124, end: 20120216
  2. GASMOTIN [Concomitant]
  3. REBETOL [Concomitant]
     Route: 048
     Dates: start: 20120224, end: 20120227
  4. REBETOL [Concomitant]
     Indication: HEPATITIS C
     Route: 048
     Dates: start: 20120124, end: 20120130
  5. REBETOL [Concomitant]
     Route: 048
     Dates: start: 20120131, end: 20120223
  6. ALLOPURINOL [Concomitant]
  7. TELAVIC (TELAPREVIR) [Suspect]
     Route: 048
     Dates: start: 20120306
  8. REBETOL [Concomitant]
     Route: 048
     Dates: start: 20120306
  9. PEGINTERON [Concomitant]
     Indication: HEPATITIS C
     Route: 058
     Dates: start: 20120124
  10. BETAMAC [Concomitant]

REACTIONS (4)
  - ANAEMIA [None]
  - BLOOD CREATININE INCREASED [None]
  - BLOOD URIC ACID INCREASED [None]
  - MALAISE [None]
